FAERS Safety Report 7177231-3 (Version None)
Quarter: 2010Q4

REPORT INFORMATION
  Report Type: 
  Country: None (occurrence: None)
  Receive Date: 20101220
  Receipt Date: 20101125
  Transmission Date: 20110411
  Serious: Yes (Other)
  Sender: FDA-Public Use
  Company Number: AU-PFIZER INC-2004113512

PATIENT
  Age: 63 Year
  Sex: Male
  Weight: 85 kg

DRUGS (6)
  1. LIPITOR [Suspect]
     Indication: HYPERCHOLESTEROLAEMIA
     Dosage: 20 MG, 1X/DAY
     Route: 048
     Dates: start: 20000711, end: 20010223
  2. PRAVACHOL [Concomitant]
     Route: 048
     Dates: start: 20030311, end: 20040801
  3. SALAZOPYRIN [Concomitant]
     Route: 048
     Dates: start: 20000801
  4. BETALOC [Concomitant]
     Route: 065
  5. DAIVONEX [Concomitant]
     Route: 061
  6. CAPOTEN [Concomitant]
     Route: 065

REACTIONS (3)
  - DIALYSIS [None]
  - TEETH BRITTLE [None]
  - TOOTH LOSS [None]
